FAERS Safety Report 5802698-X (Version None)
Quarter: 2008Q3

REPORT INFORMATION
  Report Type: 
  Country: None (occurrence: None)
  Receive Date: 20080702
  Receipt Date: 20080617
  Transmission Date: 20090109
  Serious: Yes (Death)
  Sender: FDA-Public Use
  Company Number: S08-MYS-01959-01

PATIENT
  Age: 42 Year
  Sex: Female

DRUGS (1)
  1. LEXAPRO [Suspect]
     Indication: DYSTHYMIC DISORDER
     Dates: start: 20060215, end: 20060301

REACTIONS (2)
  - DRUG TOXICITY [None]
  - HEPATIC STEATOSIS [None]
